FAERS Safety Report 13975803 (Version 2)
Quarter: 2017Q4

REPORT INFORMATION
  Report Type: Spontaneous
  Country: US (occurrence: US)
  Receive Date: 20170915
  Receipt Date: 20171030
  Transmission Date: 20180321
  Serious: Yes (Other)
  Sender: FDA-Public Use
  Company Number: US-PFIZER INC-2017399735

PATIENT
  Sex: Female

DRUGS (1)
  1. ADVIL [Suspect]
     Active Substance: IBUPROFEN
     Indication: OEDEMA PERIPHERAL
     Dosage: 200 MG, UNK
     Route: 048

REACTIONS (6)
  - Anaphylactic reaction [Unknown]
  - Oropharyngeal pain [Unknown]
  - Swelling face [Unknown]
  - Eye swelling [Unknown]
  - Hypersensitivity [Unknown]
  - Intentional product misuse [Unknown]

NARRATIVE: CASE EVENT DATE: 201709
